FAERS Safety Report 17965108 (Version 2)
Quarter: 2020Q3

REPORT INFORMATION
  Report Type: Report from Study
  Country: None (occurrence: US)
  Receive Date: 20200630
  Receipt Date: 20200817
  Transmission Date: 20201103
  Serious: Yes (Hospitalization)
  Sender: FDA-Public Use
  Company Number: US-ABBVIE-20P-163-3279553-00

PATIENT
  Sex: Female

DRUGS (3)
  1. IMBRUVICA [Suspect]
     Active Substance: IBRUTINIB
     Indication: CHRONIC LYMPHOCYTIC LEUKAEMIA
     Route: 048
  2. IMBRUVICA [Suspect]
     Active Substance: IBRUTINIB
     Indication: CHRONIC LYMPHOCYTIC LEUKAEMIA
     Route: 048
     Dates: start: 20200131
  3. IMBRUVICA [Suspect]
     Active Substance: IBRUTINIB
     Route: 048
     Dates: start: 202001

REACTIONS (10)
  - Vomiting [Not Recovered/Not Resolved]
  - Pneumonia aspiration [Recovered/Resolved]
  - Neck pain [Unknown]
  - Dyspepsia [Unknown]
  - Muscle strain [Unknown]
  - Nausea [Unknown]
  - Laboratory test abnormal [Unknown]
  - Hyperthyroidism [Unknown]
  - White blood cell count decreased [Unknown]
  - Constipation [Unknown]

NARRATIVE: CASE EVENT DATE: 2020
